FAERS Safety Report 11109660 (Version 2)
Quarter: 2015Q2

REPORT INFORMATION
  Report Type: Spontaneous
  Country: US (occurrence: US)
  Receive Date: 20150513
  Receipt Date: 20150611
  Transmission Date: 20150821
  Serious: Yes (Other)
  Sender: FDA-Public Use
  Company Number: US-CELGENE-USA-2015050922

PATIENT
  Sex: Female

DRUGS (4)
  1. ASA [Concomitant]
     Active Substance: ASPIRIN
     Indication: PRODUCT USED FOR UNKNOWN INDICATION
     Route: 065
  2. POMALYST [Suspect]
     Active Substance: POMALIDOMIDE
     Indication: AMYLOIDOSIS
     Route: 048
     Dates: start: 201403, end: 201502
  3. POMALYST [Suspect]
     Active Substance: POMALIDOMIDE
     Dosage: 5.7143 MILLIGRAM
     Route: 048
     Dates: start: 20150312
  4. DEXAMETHASONE. [Concomitant]
     Active Substance: DEXAMETHASONE
     Indication: PRODUCT USED FOR UNKNOWN INDICATION
     Route: 048

REACTIONS (1)
  - Human chorionic gonadotropin increased [Unknown]
